FAERS Safety Report 20761018 (Version 1)
Quarter: 2022Q2

REPORT INFORMATION
  Report Type: Spontaneous
  Country: PT (occurrence: None)
  Receive Date: 20220428
  Receipt Date: 20220428
  Transmission Date: 20220721
  Serious: Yes (Other)
  Sender: FDA-Public Use
  Company Number: PT-MLMSERVICE-20220412-3494529-1

PATIENT
  Sex: Female

DRUGS (9)
  1. CARBOPLATIN [Suspect]
     Active Substance: CARBOPLATIN
     Indication: Metastases to lymph nodes
     Dosage: AUC 2-244.35 MG, WEEKLY FOR FOUR CYCLES
     Route: 065
  2. CARBOPLATIN [Suspect]
     Active Substance: CARBOPLATIN
     Indication: Porocarcinoma
  3. CARBOPLATIN [Suspect]
     Active Substance: CARBOPLATIN
     Indication: Metastases to breast
  4. PACLITAXEL [Suspect]
     Active Substance: PACLITAXEL
     Indication: Metastases to lymph nodes
     Dosage: (139.2 MG) WEEKLY FOR FOUR CYCLES
     Route: 065
  5. PACLITAXEL [Suspect]
     Active Substance: PACLITAXEL
     Indication: Porocarcinoma
  6. PACLITAXEL [Suspect]
     Active Substance: PACLITAXEL
     Indication: Metastases to breast
  7. DENOSUMAB [Concomitant]
     Active Substance: DENOSUMAB
     Indication: Porocarcinoma
     Dosage: 120 MG IN 28/28 DAYS
     Route: 058
  8. DENOSUMAB [Concomitant]
     Active Substance: DENOSUMAB
     Indication: Metastases to breast
  9. DENOSUMAB [Concomitant]
     Active Substance: DENOSUMAB
     Indication: Metastases to lymph nodes

REACTIONS (6)
  - Decreased appetite [Unknown]
  - Anaemia [Unknown]
  - General physical condition abnormal [Unknown]
  - Weight decreased [Unknown]
  - Thrombocytopenia [Unknown]
  - Malnutrition [Unknown]
